FAERS Safety Report 10440749 (Version 1)
Quarter: 2014Q3

REPORT INFORMATION
  Report Type: Spontaneous
  Country: IT (occurrence: IT)
  Receive Date: 20140909
  Receipt Date: 20140909
  Transmission Date: 20150326
  Serious: Yes (Other)
  Sender: FDA-Public Use
  Company Number: IT-RANBAXY-2014RR-85116

PATIENT
  Age: 54 Year
  Sex: Female

DRUGS (2)
  1. CLARITHROMYCIN. [Suspect]
     Active Substance: CLARITHROMYCIN
     Indication: UPPER RESPIRATORY TRACT INFECTION
     Dosage: 500 MG TOTAL
     Route: 048
     Dates: start: 20140818, end: 20140819
  2. NUROFEN [Suspect]
     Active Substance: IBUPROFEN
     Indication: NECK PAIN
     Dosage: 1 DF TOTAL
     Route: 048
     Dates: start: 20140818, end: 20140819

REACTIONS (1)
  - Angioedema [Recovered/Resolved]

NARRATIVE: CASE EVENT DATE: 20140819
